FAERS Safety Report 5881412-6 (Version None)
Quarter: 2008Q3

REPORT INFORMATION
  Report Type: 
  Country: None (occurrence: None)
  Receive Date: 20080912
  Receipt Date: 20080623
  Transmission Date: 20090109
  Serious: No
  Sender: FDA-Public Use
  Company Number: US-ABBOTT-08P-163-0460121-00

PATIENT
  Sex: Male
  Weight: 83.536 kg

DRUGS (8)
  1. HUMIRA [Interacting]
     Indication: RHEUMATOID ARTHRITIS
     Route: 058
  2. HUMIRA [Interacting]
     Route: 058
  3. HUMIRA [Interacting]
     Route: 058
  4. LEFLUNOMIDE [Suspect]
     Indication: RHEUMATOID ARTHRITIS
     Route: 048
  5. METFORMIN HCL [Concomitant]
     Indication: DIABETES MELLITUS
     Route: 048
  6. DICLOFENAC DIETHYLAMINE [Concomitant]
     Indication: ANTIINFLAMMATORY THERAPY
     Route: 048
  7. CITALOTRANHYDROMIDE [Concomitant]
     Indication: ABNORMAL BEHAVIOUR
     Route: 048
  8. HYDROCODONE BITARTRATE [Concomitant]
     Indication: PAIN
     Dosage: 2 TO 3 TABLETS DAILY
     Route: 048
     Dates: start: 19740101

REACTIONS (5)
  - ABNORMAL BEHAVIOUR [None]
  - DRUG INEFFECTIVE [None]
  - DRUG INTERACTION [None]
  - DYSPNOEA [None]
  - PAIN [None]
